FAERS Safety Report 7906043-5 (Version None)
Quarter: 2011Q4

REPORT INFORMATION
  Report Type: 
  Country: None (occurrence: None)
  Receive Date: 20111110
  Receipt Date: 20111110
  Transmission Date: 20120403
  Serious: Yes (Other)
  Sender: FDA-Public Use
  Company Number: None

PATIENT
  Age: 47 Year
  Sex: Female
  Weight: 53.07 kg

DRUGS (1)
  1. CIPROFLOXACIN [Suspect]
     Indication: WOUND INFECTION
     Dosage: 500MG
     Dates: start: 20111103, end: 20111105

REACTIONS (3)
  - PAIN IN EXTREMITY [None]
  - GAIT DISTURBANCE [None]
  - MUSCLE TIGHTNESS [None]
